FAERS Safety Report 5423592-2 (Version None)
Quarter: 2007Q3

REPORT INFORMATION
  Report Type: 
  Country: None (occurrence: None)
  Receive Date: 20070823
  Receipt Date: 20070814
  Transmission Date: 20080115
  Serious: Yes (Hospitalization)
  Sender: FDA-Public Use
  Company Number: FR-AVENTIS-200712635FR

PATIENT
  Age: 72 Year
  Sex: Male

DRUGS (10)
  1. LASILIX                            /00032601/ [Suspect]
     Route: 048
  2. CORDARONE [Suspect]
     Indication: ARRHYTHMIA
     Route: 048
     Dates: end: 20070525
  3. KARDEGIC                           /00002703/ [Suspect]
     Route: 048
  4. PRAVASTATIN [Suspect]
     Route: 048
  5. METFORMINE [Suspect]
     Route: 048
  6. PROPRANOLOL [Suspect]
     Route: 048
  7. KALEORID [Concomitant]
  8. AMLODIPINE [Concomitant]
  9. RAMIPRIL [Concomitant]
  10. TRINITRINE [Concomitant]

REACTIONS (6)
  - ASTHENIA [None]
  - DYSPNOEA [None]
  - HYPOKINESIA [None]
  - INTERSTITIAL LUNG DISEASE [None]
  - RESPIRATORY DISTRESS [None]
  - WEIGHT DECREASED [None]
